FAERS Safety Report 20779275 (Version 1)
Quarter: 2022Q2

REPORT INFORMATION
  Report Type: Spontaneous
  Country: US (occurrence: US)
  Receive Date: 20220503
  Receipt Date: 20220503
  Transmission Date: 20220721
  Serious: No
  Sender: FDA-Public Use
  Company Number: US-PFIZER INC-202200185456

PATIENT
  Age: 55 Year
  Sex: Female

DRUGS (1)
  1. PREGABALIN [Suspect]
     Active Substance: PREGABALIN
     Dosage: UNK

REACTIONS (4)
  - Dyspnoea [Unknown]
  - Musculoskeletal discomfort [Unknown]
  - Chest discomfort [Unknown]
  - Drug hypersensitivity [Unknown]
